FAERS Safety Report 8524236-3 (Version None)
Quarter: 2012Q3

REPORT INFORMATION
  Report Type: 
  Country: None (occurrence: None)
  Receive Date: 20120720
  Receipt Date: 20120717
  Transmission Date: 20120928
  Serious: Yes (Hospitalization)
  Sender: FDA-Public Use
  Company Number: US-GE HEALTHCARE MEDICAL DIAGNOSTICS-OMPQ-PR-1207S-0782

PATIENT
  Sex: Male

DRUGS (7)
  1. OMNIPAQUE 140 [Suspect]
     Indication: DIAGNOSTIC PROCEDURE
  2. FLAGYL [Concomitant]
  3. ZOSYN [Concomitant]
  4. OMNIPAQUE 140 [Suspect]
     Indication: PRODUCT USED FOR UNKNOWN INDICATION
     Route: 065
     Dates: start: 20120328, end: 20120328
  5. TORADOL [Concomitant]
  6. CIPROFLOXACIN [Concomitant]
  7. VANCOMYCIN [Concomitant]

REACTIONS (1)
  - BLOOD CREATININE INCREASED [None]
